FAERS Safety Report 5383653-3 (Version None)
Quarter: 2007Q3

REPORT INFORMATION
  Report Type: 
  Country: None (occurrence: None)
  Receive Date: 20070706
  Receipt Date: 20070627
  Transmission Date: 20080115
  Serious: Yes (Hospitalization)
  Sender: FDA-Public Use
  Company Number: 2006BI003686

PATIENT
  Sex: Female

DRUGS (3)
  1. AVONEX LYOPHILIZED [Suspect]
     Indication: MULTIPLE SCLEROSIS
     Dosage: 30 UG QW IM
     Route: 030
     Dates: start: 19980601, end: 20010101
  2. AVONEX [Suspect]
     Indication: MULTIPLE SCLEROSIS
     Dosage: 30 UG QW IM
     Route: 030
     Dates: start: 20010101
  3. STEROIDS [Concomitant]

REACTIONS (9)
  - BALANCE DISORDER [None]
  - CYSTITIS [None]
  - EPISTAXIS [None]
  - FALL [None]
  - JOINT INJURY [None]
  - LACERATION [None]
  - MUSCULOSKELETAL STIFFNESS [None]
  - OSTEONECROSIS [None]
  - SURGICAL PROCEDURE REPEATED [None]
